FAERS Safety Report 8109543-0 (Version None)
Quarter: 2012Q1

REPORT INFORMATION
  Report Type: 
  Country: None (occurrence: None)
  Receive Date: 20120202
  Receipt Date: 20120116
  Transmission Date: 20120608
  Serious: No
  Sender: FDA-Public Use
  Company Number: US-AMGEN-USASP2012000761

PATIENT
  Age: 58 Year
  Sex: Male

DRUGS (5)
  1. PIROXICAM [Concomitant]
     Dosage: UNK
  2. ENBREL [Suspect]
     Indication: RHEUMATOID ARTHRITIS
     Dosage: 25 MG, 2 TIMES/WK
     Route: 058
  3. OMEPRAZOLE [Concomitant]
     Dosage: UNK
  4. METHOTREXATE [Concomitant]
     Dosage: UNK
  5. PREDNISONE TAB [Concomitant]
     Dosage: UNK

REACTIONS (3)
  - THROMBOSIS [None]
  - BACK PAIN [None]
  - GAIT DISTURBANCE [None]
